FAERS Safety Report 7131106-4 (Version None)
Quarter: 2010Q4

REPORT INFORMATION
  Report Type: 
  Country: None (occurrence: None)
  Receive Date: 20101201
  Receipt Date: 20101118
  Transmission Date: 20110411
  Serious: Yes (Other)
  Sender: FDA-Public Use
  Company Number: US-ELI_LILLY_AND_COMPANY-US201011005648

PATIENT
  Sex: Female

DRUGS (5)
  1. FORTEO [Suspect]
     Indication: OSTEOPOROSIS
     Dosage: 20 UG, DAILY (1/D)
     Route: 065
  2. CITRACAL + D [Concomitant]
     Dosage: UNK, UNKNOWN
     Route: 065
  3. TUMS /00108001/ [Concomitant]
     Dosage: UNK, OCCASIONALLY
     Route: 065
  4. VITAMIN B [Concomitant]
     Dosage: UNK, UNKNOWN
     Route: 065
  5. CHOLESTEROL [Concomitant]
     Dosage: UNK, UNKNOWN
     Route: 065

REACTIONS (6)
  - ABSCESS ORAL [None]
  - BONE DENSITY DECREASED [None]
  - FACIAL PAIN [None]
  - OSTEONECROSIS OF JAW [None]
  - STRESS [None]
  - TOOTHACHE [None]
